FAERS Safety Report 20579894 (Version 4)
Quarter: 2023Q2

REPORT INFORMATION
  Report Type: Spontaneous
  Country: US (occurrence: US)
  Receive Date: 20220310
  Receipt Date: 20230417
  Transmission Date: 20230721
  Serious: No
  Sender: FDA-Public Use
  Company Number: US-PFIZER INC-202101322497

PATIENT
  Age: 22 Year
  Sex: Female

DRUGS (1)
  1. BENEFIX [Suspect]
     Active Substance: COAGULATION FACTOR IX RECOMBINANT HUMAN\ISOPROPYL ALCOHOL
     Indication: Haemorrhage
     Dosage: 1860 U (+/-1070) IV DAILY PRN FOR BLEEDING]

REACTIONS (2)
  - Maternal exposure during pregnancy [Unknown]
  - Weight increased [Unknown]
